FAERS Safety Report 25654111 (Version 2)
Quarter: 2025Q3

REPORT INFORMATION
  Report Type: Spontaneous
  Country: US (occurrence: US)
  Receive Date: 20250807
  Receipt Date: 20250916
  Transmission Date: 20251021
  Serious: No
  Sender: ALEXION PHARMACEUTICALS
  Company Number: US-AstraZeneca-CH-00925332AP

PATIENT
  Sex: Female

DRUGS (2)
  1. FASENRA [Suspect]
     Active Substance: BENRALIZUMAB
     Route: 065
  2. FASENRA [Suspect]
     Active Substance: BENRALIZUMAB

REACTIONS (9)
  - Product dose omission issue [Unknown]
  - Asthma [Unknown]
  - Drug dose omission by device [Unknown]
  - Off label use [Unknown]
  - Injection site pain [Unknown]
  - Injection site haemorrhage [Unknown]
  - Product use issue [Unknown]
  - Injury associated with device [Unknown]
  - Device malfunction [Unknown]
